FAERS Safety Report 23842451 (Version 1)
Quarter: 2024Q2

REPORT INFORMATION
  Report Type: Spontaneous
  Country: US (occurrence: US)
  Receive Date: 20240510
  Receipt Date: 20240510
  Transmission Date: 20240716
  Serious: No
  Sender: FDA-Public Use
  Company Number: US-TEVA-VS-3183071

PATIENT
  Sex: Female

DRUGS (11)
  1. LAMOTRIGINE [Suspect]
     Active Substance: LAMOTRIGINE
     Indication: Product used for unknown indication
     Dosage: 6 MG
     Route: 065
  2. Clonidine HC 0.1 mg [Concomitant]
     Indication: Product used for unknown indication
     Dosage: 0.1 MG
     Route: 065
  3. Glimepiride HC [Concomitant]
     Indication: Product used for unknown indication
     Dosage: 2 MG
     Route: 065
  4. LAMOTRIGINE [Concomitant]
     Active Substance: LAMOTRIGINE
     Indication: Product used for unknown indication
     Dosage: 100MG
     Route: 065
  5. Metformin HC TB2 [Concomitant]
     Indication: Product used for unknown indication
     Dosage: 500 MG
     Route: 065
  6. PIOGLITAZONE [Concomitant]
     Active Substance: PIOGLITAZONE
     Indication: Product used for unknown indication
     Dosage: 15 MG
     Route: 065
  7. PREGABALIN [Concomitant]
     Active Substance: PREGABALIN
     Indication: Product used for unknown indication
     Dosage: 300MG
     Route: 065
  8. ROSUVASTATIN [Concomitant]
     Active Substance: ROSUVASTATIN
     Indication: Product used for unknown indication
     Dosage: 5 MG
     Route: 065
  9. Tamsulosin H [Concomitant]
     Indication: Product used for unknown indication
     Dosage: 0.4 MG
  10. BACLOFEN [Concomitant]
     Active Substance: BACLOFEN
     Indication: Product used for unknown indication
     Dosage: 20MG
     Route: 065
  11. buspirone HC 15 mg [Concomitant]
     Indication: Product used for unknown indication
     Dosage: 15 MG
     Route: 065

REACTIONS (4)
  - Intentional dose omission [Unknown]
  - Drug ineffective [Unknown]
  - Condition aggravated [Unknown]
  - Depression [Unknown]
